FAERS Safety Report 7958161-3 (Version None)
Quarter: 2011Q4

REPORT INFORMATION
  Report Type: 
  Country: None (occurrence: None)
  Receive Date: 20111205
  Receipt Date: 20111201
  Transmission Date: 20120403
  Serious: Yes (Hospitalization)
  Sender: FDA-Public Use
  Company Number: IT-PFIZER INC-2011023591

PATIENT
  Age: 74 Year
  Sex: Male

DRUGS (7)
  1. CARDURA [Concomitant]
  2. KANRENOL [Suspect]
     Indication: HYPERTENSION
     Dosage: 1UNIT DOSE, DAILY
     Route: 048
     Dates: start: 20101220, end: 20110118
  3. LASIX [Concomitant]
     Dosage: 2 IU, 1X/DAY
     Route: 048
  4. RAMIPRIL [Suspect]
     Indication: HYPERTENSION
     Dosage: 5 MG, 1X/DAY
     Route: 048
     Dates: start: 20101220, end: 20110118
  5. PANTOPRAZOLE [Concomitant]
  6. INSULIN [Concomitant]
  7. NORVASC [Concomitant]
     Dosage: 1 IU, 1X/DAY
     Route: 048

REACTIONS (4)
  - RENAL FAILURE ACUTE [None]
  - HYPERKALAEMIA [None]
  - AZOTAEMIA [None]
  - BLOOD BICARBONATE DECREASED [None]
